FAERS Safety Report 13717020 (Version 1)
Quarter: 2017Q3

REPORT INFORMATION
  Report Type: Spontaneous
  Country: US (occurrence: US)
  Receive Date: 20170705
  Receipt Date: 20170705
  Transmission Date: 20171127
  Serious: Yes (Other)
  Sender: FDA-Public Use
  Company Number: US-ROCHE-1959223

PATIENT
  Age: 42 Year
  Sex: Female

DRUGS (1)
  1. ACTILYSE [Suspect]
     Active Substance: ALTEPLASE
     Indication: CEREBROVASCULAR ACCIDENT
     Route: 042

REACTIONS (4)
  - General physical health deterioration [Unknown]
  - Infarction [Unknown]
  - Haemorrhagic transformation stroke [Unknown]
  - Vascular occlusion [Unknown]
